FAERS Safety Report 4846466-4 (Version None)
Quarter: 2005Q4

REPORT INFORMATION
  Report Type: 
  Country: None (occurrence: None)
  Receive Date: 20051201
  Receipt Date: 20051115
  Transmission Date: 20060501
  Serious: Yes (Hospitalization)
  Sender: FDA-Public Use
  Company Number: AVE_0047_2005

PATIENT
  Age: 30 Year
  Sex: Female

DRUGS (2)
  1. NICOTINE TRANSDERMAL SYSTEM [Suspect]
     Dosage: DF TP
     Route: 061
  2. TOBACCO [Suspect]

REACTIONS (4)
  - DRUG TOXICITY [None]
  - OEDEMATOUS PANCREATITIS [None]
  - OVERDOSE [None]
  - SMOKER [None]
